FAERS Safety Report 14015918 (Version 2)
Quarter: 2017Q4

REPORT INFORMATION
  Report Type: Report from Study
  Country: NL (occurrence: NL)
  Receive Date: 20170927
  Receipt Date: 20171031
  Transmission Date: 20180321
  Serious: Yes (Other)
  Sender: FDA-Public Use
  Company Number: NL-BEH-2017083753

PATIENT
  Age: 62 Year
  Sex: Female

DRUGS (3)
  1. FLUTICASONE. [Concomitant]
     Active Substance: FLUTICASONE
     Dosage: UNK
     Route: 065
  2. AMITRIPTYLINE [Concomitant]
     Active Substance: AMITRIPTYLINE
     Route: 065
  3. HUMAN IMMUNOGLOBULIN (NON-COMPANY) [Suspect]
     Active Substance: HUMAN IMMUNOGLOBULIN G
     Indication: CHRONIC INFLAMMATORY DEMYELINATING POLYRADICULONEUROPATHY
     Dosage: 65 G, Q3W
     Route: 042

REACTIONS (5)
  - Pruritus [Recovered/Resolved]
  - Skin plaque [Recovered/Resolved]
  - Cutaneous lupus erythematosus [Recovered/Resolved]
  - Erythema annulare [Recovered/Resolved]
  - Papule [Recovered/Resolved]
